FAERS Safety Report 9927531 (Version 2)
Quarter: 2014Q2

REPORT INFORMATION
  Report Type: Report from Study
  Country: GB (occurrence: GB)
  Receive Date: 20140227
  Receipt Date: 20140523
  Transmission Date: 20141212
  Serious: Yes (Other)
  Sender: FDA-Public Use
  Company Number: GB-ROCHE-1355744

PATIENT
  Sex: Female

DRUGS (2)
  1. RITUXIMAB [Suspect]
     Indication: RHEUMATOID ARTHRITIS
     Route: 065
     Dates: start: 20130709
  2. METHOTREXATE [Concomitant]
     Route: 065
     Dates: end: 200910

REACTIONS (1)
  - Neuroendocrine tumour [Recovered/Resolved with Sequelae]
